FAERS Safety Report 16043447 (Version 1)
Quarter: 2019Q1

REPORT INFORMATION
  Report Type: Spontaneous
  Country: DE (occurrence: DE)
  Receive Date: 20190306
  Receipt Date: 20190306
  Transmission Date: 20190418
  Serious: Yes (Other)
  Sender: FDA-Public Use
  Company Number: DE-ASTRAZENECA-2019SE34718

PATIENT
  Sex: Male

DRUGS (1)
  1. OSIMERTINIB. [Suspect]
     Active Substance: OSIMERTINIB
     Dosage: 80.0MG UNKNOWN
     Route: 048

REACTIONS (3)
  - Malignant neoplasm progression [Unknown]
  - Metastasis [Unknown]
  - Diarrhoea [Unknown]
